FAERS Safety Report 25390781 (Version 3)
Quarter: 2025Q3

REPORT INFORMATION
  Report Type: Spontaneous
  Country: US (occurrence: US)
  Receive Date: 20250603
  Receipt Date: 20250815
  Transmission Date: 20251020
  Serious: Yes (Hospitalization, Other)
  Sender: OTSUKA
  Company Number: US-MMM-Otsuka-8ZWYN7F0

PATIENT
  Age: 70 Year
  Sex: Female
  Weight: 59.86 kg

DRUGS (21)
  1. REXULTI [Suspect]
     Active Substance: BREXPIPRAZOLE
     Indication: Dementia Alzheimer^s type
     Dosage: 2 MG, QD
     Route: 048
     Dates: start: 20250417, end: 202504
  2. REXULTI [Suspect]
     Active Substance: BREXPIPRAZOLE
     Indication: Agitation
     Route: 065
     Dates: start: 20250213, end: 202502
  3. REXULTI [Suspect]
     Active Substance: BREXPIPRAZOLE
     Route: 065
     Dates: start: 20250220, end: 202504
  4. SEROQUEL [Suspect]
     Active Substance: QUETIAPINE FUMARATE
     Indication: Delirium
     Route: 065
  5. SEROQUEL [Suspect]
     Active Substance: QUETIAPINE FUMARATE
     Indication: Agitation
     Route: 065
  6. SEROQUEL [Suspect]
     Active Substance: QUETIAPINE FUMARATE
     Dosage: 125 MG, DAILY
     Route: 065
  7. BISACODYL [Concomitant]
     Active Substance: BISACODYL
     Indication: Irritable bowel syndrome
     Dosage: 1 DF, QD IN THE MORNING (1 SUPPOSITORY AS NEEDED) (STRENGTH: 10 MG)
     Route: 054
     Dates: start: 20240913
  8. MILK OF MAGNESIA [Concomitant]
     Active Substance: MAGNESIUM HYDROXIDE
     Indication: Irritable bowel syndrome
     Dosage: 30 ML, QD IN THE EVENING (STRENGTH: 1200 MG/15 ML)
     Route: 048
     Dates: start: 20240913
  9. AMLODIPINE BESYLATE [Concomitant]
     Active Substance: AMLODIPINE BESYLATE
     Indication: Hypertension
     Dosage: 1 DF, QD (1 TABLET) (STRENGTH: 5 MG)
     Route: 048
     Dates: start: 20240914
  10. GALANTAMINE HYDROBROMIDE [Concomitant]
     Active Substance: GALANTAMINE HYDROBROMIDE
     Indication: Memory impairment
     Dosage: 1 DF, BID (1 TABLET) (STRENGTH: 8 MG)
     Route: 048
     Dates: start: 20240913
  11. LISINOPRIL [Concomitant]
     Active Substance: LISINOPRIL
     Indication: Hypertension
     Dosage: 2 DF, QD (TWO TABLETS) (STRENGTH: 20 MG)
     Route: 048
     Dates: start: 20240914
  12. FAMOTIDINE [Concomitant]
     Active Substance: FAMOTIDINE
     Indication: Gastrooesophageal reflux disease
     Dosage: 1 DF, QD (1 TABLET) (STRENGTH: 20 MG)
     Route: 048
     Dates: start: 20240914
  13. PRAVASTATIN SODIUM [Concomitant]
     Active Substance: PRAVASTATIN SODIUM
     Indication: Blood cholesterol abnormal
     Dosage: 1 DF, QD (1 TABLET AT BEDTIME) (STRENGTH: 20 MG)
     Route: 048
     Dates: start: 20240913
  14. ROPINIROLE HYDROCHLORIDE [Concomitant]
     Active Substance: ROPINIROLE HYDROCHLORIDE
     Indication: Restless legs syndrome
     Dosage: 1 DF, QD (1 TABLET AT BEDTIME) (STRENGTH: 0.25 MG)
     Route: 048
     Dates: start: 20240923
  15. ACETAMINOPHEN [Concomitant]
     Active Substance: ACETAMINOPHEN
     Indication: Pain management
     Dosage: 2 DF, BID (TWO TABLETS) (STRENGTH: 325 MG)
     Route: 048
     Dates: start: 20241217
  16. ACETAMINOPHEN [Concomitant]
     Active Substance: ACETAMINOPHEN
     Dosage: 2 DF, QD
     Route: 048
     Dates: start: 20241217
  17. IMIPRAMINE HYDROCHLORIDE [Concomitant]
     Active Substance: IMIPRAMINE HYDROCHLORIDE
     Indication: Depression
     Dosage: 2 DF, QD (TWO TABLETS AT BEDTIME) (STRENGTH: 50 MG)
     Route: 048
     Dates: start: 20250101
  18. QUETIAPINE FUMARATE [Concomitant]
     Active Substance: QUETIAPINE FUMARATE
     Indication: Adjustment disorder with depressed mood
     Dosage: 1 DF, QD (1 TABLET) (STRENGTH: 25 MG)
     Route: 048
     Dates: start: 20250123
  19. QUETIAPINE FUMARATE [Concomitant]
     Active Substance: QUETIAPINE FUMARATE
     Indication: Adjustment disorder with depressed mood
     Dosage: 1 DF, QD (1 TABLET, AT BEDTIME) (STRENGTH: 100 MG)
     Route: 048
     Dates: start: 20250123
  20. ESOMEPRAZOLE MAGNESIUM [Concomitant]
     Active Substance: ESOMEPRAZOLE MAGNESIUM
     Indication: Gastrooesophageal reflux disease
     Dosage: 1 DF,QD (1 CAPSULE) (STRENGTH: 20 MG)
     Route: 048
     Dates: start: 20250219
  21. DEVICE\XYLITOL [Concomitant]
     Active Substance: DEVICE\XYLITOL
     Indication: Dry mouth
     Route: 048
     Dates: start: 20250410

REACTIONS (17)
  - Unresponsive to stimuli [Recovered/Resolved]
  - Seizure like phenomena [Recovered/Resolved]
  - Chest pain [Recovered/Resolved]
  - Tremor [Recovered/Resolved]
  - Crying [Not Recovered/Not Resolved]
  - Patient elopement [Unknown]
  - Wound [Unknown]
  - Agitation [Not Recovered/Not Resolved]
  - Pain in jaw [Unknown]
  - Disturbance in attention [Not Recovered/Not Resolved]
  - Lethargy [Not Recovered/Not Resolved]
  - Malaise [Not Recovered/Not Resolved]
  - Asthenia [Recovered/Resolved]
  - Fatigue [Not Recovered/Not Resolved]
  - Nausea [Not Recovered/Not Resolved]
  - Rash [Recovered/Resolved]
  - Somnolence [Not Recovered/Not Resolved]

NARRATIVE: CASE EVENT DATE: 20250422
